FAERS Safety Report 9855410 (Version 1)
Quarter: 2013Q4

REPORT INFORMATION
  Report Type: Spontaneous
  Country: US (occurrence: None)
  Receive Date: 20131226
  Receipt Date: 20131226
  Transmission Date: 20140711
  Serious: Yes (Hospitalization, Other)
  Sender: FDA-Public Use
  Company Number: PHEH2012US015955

PATIENT
  Sex: Female

DRUGS (1)
  1. SANDOSTATIN LAR DEPOT (OCTREOTIDE WITH POLY (D L-LACTIDE-CO-GLOUCOLIDE) [Suspect]
     Indication: CARCINOID TUMOUR
     Dates: start: 20100525

REACTIONS (3)
  - Hyperbilirubinaemia [None]
  - Pyrexia [None]
  - Malignant neoplasm progression [None]
